FAERS Safety Report 25771501 (Version 1)
Quarter: 2025Q3

REPORT INFORMATION
  Report Type: Spontaneous
  Country: US (occurrence: US)
  Receive Date: 20250908
  Receipt Date: 20250908
  Transmission Date: 20251021
  Serious: No
  Sender: DOMPE FARMACEUTICI
  Company Number: US-FARMAPROD-202504-1367

PATIENT
  Sex: Male

DRUGS (25)
  1. OXERVATE [Suspect]
     Active Substance: CENEGERMIN-BKBJ
     Indication: Neurotrophic keratopathy
     Route: 047
     Dates: start: 20250317
  2. ZEAXANTHIN [Concomitant]
     Active Substance: ZEAXANTHIN
  3. VITAMIN D3 [Concomitant]
     Active Substance: CHOLECALCIFEROL
  4. FISH OIL [Concomitant]
     Active Substance: FISH OIL
  5. VITAMINS [Concomitant]
     Active Substance: VITAMINS
  6. VITAMIN B12 [Concomitant]
     Active Substance: CYANOCOBALAMIN
  7. CITALOPRAM HYDROBROMIDE [Concomitant]
     Active Substance: CITALOPRAM HYDROBROMIDE
  8. AMLODIPINE BESYLATE [Concomitant]
     Active Substance: AMLODIPINE BESYLATE
  9. FUROSEMIDE [Concomitant]
     Active Substance: FUROSEMIDE
  10. TRESIBA [Concomitant]
     Active Substance: INSULIN DEGLUDEC
  11. HUMALOG [Concomitant]
     Active Substance: INSULIN LISPRO
  12. MOUNJARO [Concomitant]
     Active Substance: TIRZEPATIDE
  13. METHOTREXATE [Concomitant]
     Active Substance: METHOTREXATE
  14. MAGNESIUM OXIDE [Concomitant]
     Active Substance: MAGNESIUM OXIDE
  15. PRAVASTATIN SODIUM [Concomitant]
     Active Substance: PRAVASTATIN SODIUM
  16. ALPRAZOLAM [Concomitant]
     Active Substance: ALPRAZOLAM
  17. BUPROPION [Concomitant]
     Active Substance: BUPROPION
  18. FAMOTIDINE [Concomitant]
     Active Substance: FAMOTIDINE
  19. CARVEDILOL [Concomitant]
     Active Substance: CARVEDILOL
  20. GABAPENTIN [Concomitant]
     Active Substance: GABAPENTIN
  21. DULOXETINE HYDROCHLORIDE [Concomitant]
     Active Substance: DULOXETINE HYDROCHLORIDE
  22. ELIQUIS [Concomitant]
     Active Substance: APIXABAN
  23. HYDROXYCHLOROQUINE SULFATE [Concomitant]
     Active Substance: HYDROXYCHLOROQUINE SULFATE
  24. SYSTANE (HYPROMELLOSE 2910 (4000 MPA.S)) [Concomitant]
     Active Substance: HYPROMELLOSE 2910 (4000 MPA.S)
  25. METFORMIN HYDROCHLORIDE [Concomitant]
     Active Substance: METFORMIN HYDROCHLORIDE

REACTIONS (1)
  - Arthralgia [Unknown]
